FAERS Safety Report 7505360-0 (Version None)
Quarter: 2011Q2

REPORT INFORMATION
  Report Type: 
  Country: None (occurrence: None)
  Receive Date: 20110420
  Receipt Date: 20110224
  Transmission Date: 20111010
  Serious: Yes (Hospitalization)
  Sender: FDA-Public Use
  Company Number: PNT2-2010-00007

PATIENT
  Age: 40 Year
  Sex: Female
  Weight: 94.9 kg

DRUGS (10)
  1. VENTOL /00012201/ (THEOPHYLLINE) [Concomitant]
  2. INVEGA /05724801/ (PALIPERIDONE) [Concomitant]
  3. CYMBALTA [Concomitant]
  4. AMBIEN [Concomitant]
  5. SPD476 VS PLACEBO (CODE NOT BROKEN) TABLET [Suspect]
     Indication: DIVERTICULITIS
     Dosage: 1X/DAY:QD, ORAL
     Route: 048
     Dates: start: 20100203, end: 20100205
  6. WELLBUTRIN [Concomitant]
  7. DEUSROL (PROCATEROL HYDROCHLORIDE) [Concomitant]
  8. ADVIL /00044201/ (IBUPROFEN) [Concomitant]
  9. BENEFIBER /01648102/ (CYAMOPSIS TETRAGONOLOBA GUM) [Concomitant]
  10. XANAX [Concomitant]

REACTIONS (1)
  - PANCREATITIS ACUTE [None]
